FAERS Safety Report 25789288 (Version 2)
Quarter: 2025Q3

REPORT INFORMATION
  Report Type: Spontaneous
  Country: US (occurrence: US)
  Receive Date: 20250911
  Receipt Date: 20250912
  Transmission Date: 20251021
  Serious: Yes (Other)
  Sender: PACIRA
  Company Number: US-ORG100016242-2025000351

PATIENT
  Age: 62 Year
  Sex: Male

DRUGS (1)
  1. EXPAREL [Suspect]
     Active Substance: BUPIVACAINE
     Indication: Surgery
     Route: 065

REACTIONS (6)
  - Axillary nerve injury [Recovering/Resolving]
  - Musculocutaneous nerve injury [Recovering/Resolving]
  - Therapeutic response prolonged [Recovering/Resolving]
  - Brachial plexopathy [Unknown]
  - Motor dysfunction [Recovered/Resolved]
  - Sensory loss [Not Recovered/Not Resolved]
